FAERS Safety Report 21011129 (Version 1)
Quarter: 2022Q2

REPORT INFORMATION
  Report Type: Spontaneous
  Country: US (occurrence: US)
  Receive Date: 20220627
  Receipt Date: 20220627
  Transmission Date: 20220721
  Serious: Yes (Hospitalization)
  Sender: FDA-Public Use
  Company Number: US-PFIZER INC-202200893558

PATIENT
  Age: 65 Year
  Sex: Female
  Weight: 72.57 kg

DRUGS (1)
  1. ZYVOX [Suspect]
     Active Substance: LINEZOLID
     Dosage: 600 MG
     Dates: end: 20220421

REACTIONS (1)
  - Localised infection [Recovered/Resolved with Sequelae]

NARRATIVE: CASE EVENT DATE: 20220101
